FAERS Safety Report 4288549-6 (Version None)
Quarter: 2004Q1

REPORT INFORMATION
  Report Type: 
  Country: None (occurrence: None)
  Receive Date: 20040205
  Receipt Date: 20040126
  Transmission Date: 20041129
  Serious: Yes (Death)
  Sender: FDA-Public Use
  Company Number: 2004GB00190

PATIENT
  Age: 42 Year
  Sex: Female

DRUGS (2)
  1. ZOLADEX [Suspect]
     Indication: UTERINE LEIOMYOMA
     Dosage: 3.6 MG MONTH SQ
     Route: 058
     Dates: start: 20010301, end: 20010610
  2. ANALGESIC LIQ [Concomitant]

REACTIONS (2)
  - HAEMORRHAGIC OVARIAN CYST [None]
  - PERITONEAL HAEMORRHAGE [None]
